FAERS Safety Report 6329173-0 (Version None)
Quarter: 2009Q3

REPORT INFORMATION
  Report Type: 
  Country: None (occurrence: None)
  Receive Date: 20090826
  Receipt Date: 20090204
  Transmission Date: 20100115
  Serious: No
  Sender: FDA-Public Use
  Company Number: US-ASTRAZENECA-2009UW03482

PATIENT
  Age: 88 Year
  Sex: Female
  Weight: 46.7 kg

DRUGS (10)
  1. IRESSA [Suspect]
     Indication: LUNG NEOPLASM MALIGNANT
     Route: 048
     Dates: start: 20040101
  2. ADVAIR HFA [Concomitant]
  3. TEARS [Concomitant]
  4. SPIRIVA [Concomitant]
  5. ALLEGRA [Concomitant]
  6. SYNTHROID [Concomitant]
  7. PREDNISONE [Concomitant]
  8. AMBIEN [Concomitant]
  9. DARVOCET [Concomitant]
     Indication: ARTHRITIS
  10. COPEX [Concomitant]

REACTIONS (3)
  - DRY SKIN [None]
  - FATIGUE [None]
  - HOT FLUSH [None]
